FAERS Safety Report 14889702 (Version 2)
Quarter: 2018Q2

REPORT INFORMATION
  Report Type: Report from Study
  Country: US (occurrence: US)
  Receive Date: 20180514
  Receipt Date: 20180530
  Transmission Date: 20180711
  Serious: Yes (Other)
  Sender: FDA-Public Use
  Company Number: US-AMGEN-USASL2018058053

PATIENT
  Age: 57 Year
  Sex: Female
  Weight: 99.79 kg

DRUGS (1)
  1. REPATHA [Suspect]
     Active Substance: EVOLOCUMAB
     Indication: BLOOD CHOLESTEROL INCREASED
     Dosage: 140 MG, Q2WK
     Route: 058

REACTIONS (8)
  - Tachycardia [Not Recovered/Not Resolved]
  - Sinus tachycardia [Not Recovered/Not Resolved]
  - Blood glucose increased [Unknown]
  - Eosinophil count increased [Unknown]
  - Red blood cell count increased [Unknown]
  - Atrial fibrillation [Not Recovered/Not Resolved]
  - Anion gap increased [Unknown]
  - Blood thyroid stimulating hormone decreased [Unknown]

NARRATIVE: CASE EVENT DATE: 20161222
